FAERS Safety Report 4393230-9 (Version None)
Quarter: 2004Q3

REPORT INFORMATION
  Report Type: 
  Country: None (occurrence: None)
  Receive Date: 20040701
  Receipt Date: 20040617
  Transmission Date: 20050211
  Serious: Yes (Hospitalization)
  Sender: FDA-Public Use
  Company Number: 2004AP03211

PATIENT
  Age: 61 Year
  Sex: Female

DRUGS (13)
  1. IRESSA [Suspect]
     Indication: BREAST CANCER
     Dosage: 250 MG DAILY PO
     Route: 048
     Dates: start: 20040405, end: 20040505
  2. IRESSA [Suspect]
     Indication: BREAST CANCER
     Dosage: 250 MG DAILY PO
     Route: 048
     Dates: start: 20040511, end: 20040519
  3. IRESSA [Suspect]
     Indication: BREAST CANCER
     Dosage: 250 MG DAILY PO
     Route: 048
     Dates: start: 20040531, end: 20040606
  4. IRESSA [Suspect]
     Indication: BREAST CANCER
     Dosage: 250 MG DAILY PO
     Route: 048
     Dates: start: 20040607, end: 20040615
  5. DOCETAXEL [Suspect]
     Indication: BREAST CANCER
     Dosage: 35 MG/M2  IV
     Route: 042
  6. DURAGESIC [Concomitant]
  7. VIOXX [Concomitant]
  8. OXYNORM [Concomitant]
  9. ZOFRAN [Concomitant]
  10. ACETAMINOPHEN [Concomitant]
  11. HALDOL [Concomitant]
  12. AFIPRAN [Concomitant]
  13. LOSEC [Concomitant]

REACTIONS (8)
  - DIARRHOEA [None]
  - DYSURIA [None]
  - FATIGUE [None]
  - HYPOKALAEMIA [None]
  - NAUSEA [None]
  - NEUROPATHY [None]
  - RASH [None]
  - VOMITING [None]
